FAERS Safety Report 8093264-7 (Version None)
Quarter: 2012Q1

REPORT INFORMATION
  Report Type: 
  Country: None (occurrence: None)
  Receive Date: 20120128
  Receipt Date: 20111004
  Transmission Date: 20120608
  Serious: No
  Sender: FDA-Public Use
  Company Number: US-ABBOTT-11P-163-0733435-00

PATIENT
  Sex: Female

DRUGS (14)
  1. HYDROXYCHLOROQUINE SULFATE [Concomitant]
     Indication: PRODUCT USED FOR UNKNOWN INDICATION
  2. FOLIC ACID [Concomitant]
     Indication: PRODUCT USED FOR UNKNOWN INDICATION
  3. NU IRON [Concomitant]
     Indication: MINERAL SUPPLEMENTATION
  4. HYDROCODONE BITARTRATE AND ACETAMINOPHEN [Concomitant]
     Indication: PAIN
     Dosage: 5/500 MG AS NEEDED TWICE DAILY
  5. METHOTREXATE [Concomitant]
     Indication: PRODUCT USED FOR UNKNOWN INDICATION
     Dosage: 1 2.5 MG WEEKLY; 3 TAB DAY + 3 TAB NITEDAY + 3 TABS IN NIGHT
  6. SIMVASTATIN [Concomitant]
     Indication: PRODUCT USED FOR UNKNOWN INDICATION
  7. PREDNISOLONE [Concomitant]
     Indication: INFLAMMATION
     Dosage: PRN
  8. HYDROCHLOROTHIAZIDE [Concomitant]
     Indication: BLOOD PRESSURE INCREASED
  9. HUMIRA [Suspect]
     Indication: RHEUMATOID ARTHRITIS
     Dates: start: 20110520, end: 20110801
  10. LEVOTHYROXINE SODIUM [Concomitant]
     Indication: THYROID DISORDER
  11. METFORMIN HCL [Concomitant]
     Indication: PRODUCT USED FOR UNKNOWN INDICATION
  12. VITAMIN D2 [Concomitant]
     Indication: PRODUCT USED FOR UNKNOWN INDICATION
     Dosage: 25/50,000 UNITS ;1 CAP EVERY 2 WK
  13. FAMOTIDINE [Concomitant]
     Indication: PRODUCT USED FOR UNKNOWN INDICATION
  14. TEMAZEPAM [Concomitant]
     Indication: INSOMNIA

REACTIONS (10)
  - INJECTION SITE PAIN [None]
  - NAUSEA [None]
  - ANXIETY [None]
  - FLUSHING [None]
  - PALPITATIONS [None]
  - FEELING ABNORMAL [None]
  - DIARRHOEA [None]
  - DRUG INEFFECTIVE [None]
  - MIGRAINE [None]
  - ABDOMINAL PAIN [None]
